FAERS Safety Report 4564552-3 (Version None)
Quarter: 2005Q1

REPORT INFORMATION
  Report Type: 
  Country: None (occurrence: None)
  Receive Date: 20050126
  Receipt Date: 20040702
  Transmission Date: 20050727
  Serious: Yes (Death)
  Sender: FDA-Public Use
  Company Number: 2005-CN-00303CN

PATIENT

DRUGS (5)
  1. ATROVENT [Suspect]
     Indication: CHRONIC OBSTRUCTIVE PULMONARY DISEASE
     Route: 055
  2. COMBIVENT (COMBIVENT) (AEM) (IPRATROPIUM-BR, SALBUTAMOL) [Suspect]
     Indication: CHRONIC OBSTRUCTIVE PULMONARY DISEASE
     Route: 055
  3. SEREVENT [Concomitant]
  4. ANTIBIOTICS (ANTIBIOTICS) [Concomitant]
  5. OXYGEN (OXYGEN) [Concomitant]

REACTIONS (1)
  - DEATH [None]
